FAERS Safety Report 23071310 (Version 1)
Quarter: 2023Q4

REPORT INFORMATION
  Report Type: Report from Study
  Country: US (occurrence: US)
  Receive Date: 20231016
  Receipt Date: 20231016
  Transmission Date: 20240110
  Serious: Yes (Hospitalization)
  Sender: FDA-Public Use
  Company Number: US-ABBVIE-5451247

PATIENT
  Sex: Male

DRUGS (2)
  1. SKYRIZI [Suspect]
     Active Substance: RISANKIZUMAB-RZAA
     Indication: Psoriasis
     Route: 058
  2. SULFUR [Suspect]
     Active Substance: SULFUR
     Indication: Product used for unknown indication
     Dosage: PILL
     Route: 065

REACTIONS (3)
  - Diverticulitis [Recovering/Resolving]
  - Micturition disorder [Unknown]
  - Stomach mass [Unknown]
